FAERS Safety Report 7940392-X (Version None)
Quarter: 2011Q4

REPORT INFORMATION
  Report Type: 
  Country: None (occurrence: None)
  Receive Date: 20111127
  Receipt Date: 20111116
  Transmission Date: 20120403
  Serious: Yes (Hospitalization)
  Sender: FDA-Public Use
  Company Number: US-ELI_LILLY_AND_COMPANY-US201111006859

PATIENT
  Sex: Female

DRUGS (8)
  1. ELAVIL [Concomitant]
     Dosage: UNK, EACH EVENING
  2. VITAMIN D [Concomitant]
  3. ANTACID [Concomitant]
  4. FORTEO [Suspect]
     Indication: OSTEOPOROSIS
     Dosage: 20 UG, QD
     Route: 065
     Dates: start: 20110301
  5. DIOVAN [Concomitant]
  6. PRILOSEC [Concomitant]
     Dosage: UNK, EACH MORNING
  7. TANDEM PLUS [Concomitant]
  8. CALCIUM [Concomitant]

REACTIONS (1)
  - KNEE ARTHROPLASTY [None]
